FAERS Safety Report 26044663 (Version 3)
Quarter: 2025Q4

REPORT INFORMATION
  Report Type: Spontaneous
  Country: US (occurrence: US)
  Receive Date: 20251114
  Receipt Date: 20251125
  Transmission Date: 20260118
  Serious: No
  Sender: BIOGEN
  Company Number: US-BIOGEN-2090471

PATIENT
  Age: 47 Year
  Sex: Female

DRUGS (2)
  1. TYSABRI [Suspect]
     Active Substance: NATALIZUMAB
     Indication: Multiple sclerosis
     Dates: start: 20120814, end: 20250730
  2. TYSABRI [Suspect]
     Active Substance: NATALIZUMAB
     Dates: start: 20120804, end: 20250407

REACTIONS (3)
  - Sinusitis [Not Recovered/Not Resolved]
  - Headache [Unknown]
  - Menopausal symptoms [Unknown]

NARRATIVE: CASE EVENT DATE: 20120805
